FAERS Safety Report 26186288 (Version 1)
Quarter: 2025Q4

REPORT INFORMATION
  Report Type: Spontaneous
  Country: US (occurrence: None)
  Receive Date: 20251219
  Receipt Date: 20251219
  Transmission Date: 20260118
  Serious: Yes (Hospitalization)
  Sender: FDA-CTU
  Company Number: None

PATIENT
  Age: 76 Year
  Sex: Male

DRUGS (12)
  1. POMALYST [Suspect]
     Active Substance: POMALIDOMIDE
     Indication: Plasma cell myeloma
  2. DEXAMETHASONE [Concomitant]
     Active Substance: DEXAMETHASONE
  3. BUMETANIDE [Concomitant]
     Active Substance: BUMETANIDE
  4. DOXYCYCLINE [Concomitant]
     Active Substance: DOXYCYCLINE
  5. FUROSEMIDE [Concomitant]
     Active Substance: FUROSEMIDE
  6. LEVOFLOXACIN [Concomitant]
     Active Substance: LEVOFLOXACIN
  7. OXYCONTINE [Concomitant]
  8. OXYCONTINE [Concomitant]
  9. OXYCODONE [Concomitant]
     Active Substance: OXYCODONE
  10. POTASSIUM [Concomitant]
     Active Substance: POTASSIUM
  11. TAMSULOSIN [Concomitant]
     Active Substance: TAMSULOSIN
  12. VANCOMYCIN [Concomitant]
     Active Substance: VANCOMYCIN

REACTIONS (1)
  - Pseudomonas infection [None]

NARRATIVE: CASE EVENT DATE: 20251201
